FAERS Safety Report 9542949 (Version 1)
Quarter: 2013Q2

REPORT INFORMATION
  Report Type: Spontaneous
  Country: US (occurrence: None)
  Receive Date: 20130524
  Receipt Date: 20130524
  Transmission Date: 20140414
  Serious: No
  Sender: FDA-Public Use
  Company Number: PHEH2012US025695

PATIENT
  Age: 52 Year
  Sex: Female
  Weight: 45.4 kg

DRUGS (8)
  1. GILENYA (FINGOLIMOD) CAPSULE, 0.5MG [Suspect]
     Route: 048
     Dates: start: 201104
  2. ULTRAM ER (TRAMADOL HYDROCHLORIDE) [Concomitant]
  3. SIMVASTATIN (SIMVASTATIN) [Concomitant]
  4. ATACAND (CANDESARTAN CILEXETIL) [Concomitant]
  5. VITAMIN  D3 (COLECALCIFEROL) [Concomitant]
  6. VITAMIN A (RETINOL) [Concomitant]
  7. CITRACAL + D (CALCIUM CITRATE ERGOCALCIFEROL) [Concomitant]
  8. PRILOSEC [Concomitant]

REACTIONS (4)
  - Abdominal discomfort [None]
  - Vomiting [None]
  - Dyspepsia [None]
  - Migraine [None]
